FAERS Safety Report 12262933 (Version 1)
Quarter: 2016Q2

REPORT INFORMATION
  Report Type: Spontaneous
  Country: US (occurrence: US)
  Receive Date: 20160413
  Receipt Date: 20160413
  Transmission Date: 20160815
  Serious: No
  Sender: FDA-Public Use
  Company Number: US-PFIZER INC-2016167709

PATIENT
  Sex: Female

DRUGS (2)
  1. REVATIO [Suspect]
     Active Substance: SILDENAFIL CITRATE
     Dosage: 20 MG TWO TABLETS EVERY SIX HOURS (TOTAL OF 160MG/DAY)
     Dates: start: 20160122
  2. REVATIO [Suspect]
     Active Substance: SILDENAFIL CITRATE
     Indication: RAYNAUD^S PHENOMENON
     Dosage: 20 MG ONE TABLET EVERY SIX HOURS (80MG/DAY)

REACTIONS (4)
  - Product use issue [Unknown]
  - Pain [Unknown]
  - Cyanosis [Unknown]
  - Ulcer [Unknown]
